FAERS Safety Report 19376141 (Version 2)
Quarter: 2021Q2

REPORT INFORMATION
  Report Type: Spontaneous
  Country: SI (occurrence: SI)
  Receive Date: 20210604
  Receipt Date: 20210616
  Transmission Date: 20210717
  Serious: Yes (Other)
  Sender: FDA-Public Use
  Company Number: NVSC2021SI117559

PATIENT
  Age: 48 Year
  Sex: Female

DRUGS (10)
  1. CAPECITABINE. [Concomitant]
     Active Substance: CAPECITABINE
     Indication: PRODUCT USED FOR UNKNOWN INDICATION
     Dosage: UNK
     Route: 065
     Dates: end: 202011
  2. ZOLEDRONIC ACID [Concomitant]
     Active Substance: ZOLEDRONIC ACID
     Indication: PRODUCT USED FOR UNKNOWN INDICATION
     Dosage: UNK
     Route: 065
     Dates: end: 202105
  3. MEDROL [Concomitant]
     Active Substance: METHYLPREDNISOLONE
     Indication: PRODUCT USED FOR UNKNOWN INDICATION
     Dosage: 4 MG
     Route: 065
  4. RIBOCICLIB. [Suspect]
     Active Substance: RIBOCICLIB
     Indication: PRODUCT USED FOR UNKNOWN INDICATION
     Dosage: UNK
     Route: 065
     Dates: start: 2019
  5. FULVESTRANT. [Suspect]
     Active Substance: FULVESTRANT
     Indication: PRODUCT USED FOR UNKNOWN INDICATION
     Dosage: UNK
     Route: 065
     Dates: start: 202105
  6. ALPELISIB [Suspect]
     Active Substance: ALPELISIB
     Dosage: 300 MG 14 DAYS AFTER DISCONTINUATION)
     Route: 065
  7. OLAPARIB. [Concomitant]
     Active Substance: OLAPARIB
     Indication: PRODUCT USED FOR UNKNOWN INDICATION
     Dosage: UNK
     Route: 065
     Dates: end: 202105
  8. LETIZEN [Concomitant]
     Active Substance: CETIRIZINE HYDROCHLORIDE
     Indication: PRODUCT USED FOR UNKNOWN INDICATION
     Dosage: UNK
     Route: 065
  9. ALPELISIB [Suspect]
     Active Substance: ALPELISIB
     Indication: PRODUCT USED FOR UNKNOWN INDICATION
     Dosage: UNK
     Route: 065
     Dates: start: 202105
  10. LETROZOLE. [Suspect]
     Active Substance: LETROZOLE
     Indication: PRODUCT USED FOR UNKNOWN INDICATION
     Dosage: UNK
     Route: 065

REACTIONS (18)
  - Bone lesion [Unknown]
  - Delusion [Recovered/Resolved]
  - Pruritus [Recovering/Resolving]
  - Oral pruritus [Unknown]
  - Vomiting [Unknown]
  - Rash [Recovering/Resolving]
  - Headache [Recovered/Resolved]
  - Skin burning sensation [Unknown]
  - Headache [Unknown]
  - Metastases to bone [Unknown]
  - Tongue discomfort [Recovering/Resolving]
  - Lip disorder [Recovering/Resolving]
  - Oral disorder [Recovering/Resolving]
  - Negative thoughts [Recovered/Resolved]
  - Metastases to pleura [Unknown]
  - Diarrhoea [Unknown]
  - Skin burning sensation [Recovering/Resolving]
  - Pleural effusion [Unknown]

NARRATIVE: CASE EVENT DATE: 202011
